FAERS Safety Report 6101149-8 (Version None)
Quarter: 2009Q1

REPORT INFORMATION
  Report Type: 
  Country: None (occurrence: None)
  Receive Date: 20090304
  Receipt Date: 20090224
  Transmission Date: 20090719
  Serious: Yes (Hospitalization, Other)
  Sender: FDA-Public Use
  Company Number: US-BAYER-200912692NA

PATIENT
  Age: 76 Year
  Sex: Male
  Weight: 72 kg

DRUGS (6)
  1. SORAFENIB [Suspect]
     Indication: LUNG NEOPLASM MALIGNANT
     Dosage: TOTAL DAILY DOSE: 400 MG  UNIT DOSE: 200 MG
     Route: 048
     Dates: start: 20090126, end: 20090203
  2. CISPLATIN [Suspect]
     Indication: LUNG NEOPLASM MALIGNANT
     Route: 042
     Dates: start: 20090126, end: 20090126
  3. ETOPOSIDE [Suspect]
     Indication: LUNG NEOPLASM MALIGNANT
     Route: 042
     Dates: start: 20090126, end: 20090128
  4. ARIXTRA [Suspect]
     Indication: ARTERIAL THROMBOSIS
     Dosage: TOTAL DAILY DOSE: 7.5 MG
     Route: 058
     Dates: start: 20090212, end: 20090215
  5. LISINOPRIL [Concomitant]
     Dosage: TOTAL DAILY DOSE: 20 MG
     Route: 048
     Dates: end: 20090204
  6. HYTRIN [Concomitant]
     Dosage: TOTAL DAILY DOSE: 5 MG
     Route: 048
     Dates: end: 20090204

REACTIONS (8)
  - ARTERIAL THROMBOSIS [None]
  - BLOOD CREATININE INCREASED [None]
  - DEHYDRATION [None]
  - DYSPHAGIA [None]
  - NEUTROPENIA [None]
  - PERIPHERAL ISCHAEMIA [None]
  - PLATELET COUNT DECREASED [None]
  - RECTAL HAEMORRHAGE [None]
